FAERS Safety Report 4733608-4 (Version None)
Quarter: 2005Q3

REPORT INFORMATION
  Report Type: 
  Country: None (occurrence: None)
  Receive Date: 20050729
  Receipt Date: 20050719
  Transmission Date: 20060218
  Serious: Yes (Hospitalization)
  Sender: FDA-Public Use
  Company Number: 2005104926

PATIENT
  Age: 60 Year
  Sex: Male

DRUGS (3)
  1. PREDNISONE [Suspect]
     Indication: TEMPORAL ARTERITIS
     Dosage: 60 MG (30 MG, 2 IN 1 D)
  2. ACTONEL [Concomitant]
  3. CALCIUM (CALCIUM) [Concomitant]

REACTIONS (6)
  - CERVICAL VERTEBRAL FRACTURE [None]
  - EMOTIONAL DISORDER [None]
  - EUPHORIC MOOD [None]
  - FEELING ABNORMAL [None]
  - MEMORY IMPAIRMENT [None]
  - OSTEOPOROSIS [None]
